FAERS Safety Report 6233653-6 (Version None)
Quarter: 2009Q2

REPORT INFORMATION
  Report Type: 
  Country: None (occurrence: None)
  Receive Date: 20090612
  Receipt Date: 20090528
  Transmission Date: 20091009
  Serious: Yes (Other)
  Sender: FDA-Public Use
  Company Number: ACO_00555_2009

PATIENT

DRUGS (2)
  1. TERNELIN (TERNELIN - TIZANIDINE HYDROCHLORIDE) [Suspect]
     Indication: DRUG USE FOR UNKNOWN INDICATION
     Dosage: DF ORAL; A FEW YEARS
     Route: 048
  2. THYRADIN [Concomitant]

REACTIONS (2)
  - RHABDOMYOLYSIS [None]
  - THYROID DISORDER [None]
